FAERS Safety Report 13529265 (Version 2)
Quarter: 2017Q2

REPORT INFORMATION
  Report Type: Spontaneous
  Country: US (occurrence: US)
  Receive Date: 20170509
  Receipt Date: 20170509
  Transmission Date: 20170830
  Serious: No
  Sender: FDA-Public Use
  Company Number: US-ROCHE-GNE294297

PATIENT
  Age: 64 Year
  Sex: Female
  Weight: 59.93 kg

DRUGS (1)
  1. XOLAIR [Suspect]
     Active Substance: OMALIZUMAB
     Indication: ASTHMA
     Dosage: 150 MG, Q2W/X3
     Route: 058
     Dates: start: 20080806, end: 20091112

REACTIONS (4)
  - Heart rate increased [None]
  - Disorientation [Recovered/Resolved]
  - Dizziness [None]
  - Flushing [None]

NARRATIVE: CASE EVENT DATE: 20091112
